FAERS Safety Report 13313763 (Version 3)
Quarter: 2017Q1

REPORT INFORMATION
  Report Type: Spontaneous
  Country: FR (occurrence: FR)
  Receive Date: 20170309
  Receipt Date: 20170327
  Transmission Date: 20170428
  Serious: Yes (Hospitalization, Other)
  Sender: FDA-Public Use
  Company Number: FR-009507513-1703FRA002904

PATIENT
  Age: 59 Year
  Sex: Male
  Weight: 70 kg

DRUGS (9)
  1. PYRIDOXINE [Concomitant]
     Active Substance: PYRIDOXINE
     Dosage: 2 DF, QD
     Route: 048
  2. DAFALGAN [Concomitant]
     Active Substance: ACETAMINOPHEN
     Dosage: 2 DF, TID
     Route: 048
  3. COLCHICINE. [Concomitant]
     Active Substance: COLCHICINE
     Dosage: 1 MG, QD
     Route: 048
  4. STAGID [Concomitant]
     Active Substance: METFORMIN PAMOATE
     Dosage: 3 DF, QD
     Route: 048
  5. CELESTENE [Suspect]
     Active Substance: BETAMETHASONE
     Dosage: UNK
     Route: 048
     Dates: end: 20170213
  6. TOPALGIC (SUPROFEN) [Concomitant]
     Active Substance: SUPROFEN
     Dosage: UNK, PRN
     Route: 048
  7. CRESTOR [Concomitant]
     Active Substance: ROSUVASTATIN CALCIUM
     Dosage: 5 MG, QD
     Route: 048
  8. JANUVIA [Concomitant]
     Active Substance: SITAGLIPTIN PHOSPHATE
     Dosage: 1/ DAY
     Route: 048
  9. THIAMINE. [Concomitant]
     Active Substance: THIAMINE
     Dosage: 2 DF, QD
     Route: 048

REACTIONS (4)
  - Condition aggravated [Recovered/Resolved]
  - Hyponatraemia [Recovered/Resolved]
  - Infection [Recovered/Resolved]
  - General physical health deterioration [Recovered/Resolved]

NARRATIVE: CASE EVENT DATE: 20170215
